FAERS Safety Report 4392290-9 (Version None)
Quarter: 2004Q3

REPORT INFORMATION
  Report Type: 
  Country: None (occurrence: None)
  Receive Date: 20040702
  Receipt Date: 20040621
  Transmission Date: 20050211
  Serious: Yes (Hospitalization, Other)
  Sender: FDA-Public Use
  Company Number: 2004042214

PATIENT
  Age: 85 Year
  Sex: Male
  Weight: 79.8331 kg

DRUGS (11)
  1. VIAGRA [Suspect]
     Indication: ILL-DEFINED DISORDER
     Dates: start: 20040101
  2. UROLOGICALS (UROLOGICALS) [Suspect]
     Indication: PROSTATIC DISORDER
     Dates: end: 20040101
  3. FLUTICASONE PROPIONATE [Concomitant]
  4. FINASTERIDE [Concomitant]
  5. CLOPIDOGREL BISULFATE [Concomitant]
  6. MCELOZINE HYDROCHLORIDE (MECLOZINE HYDROCHLORIDE) [Concomitant]
  7. PARACETAMOL (PARACETAMOL) [Concomitant]
  8. OPHTHALMOLOGICALS (OPHTHALMOLOGICALS) [Concomitant]
  9. SERTRALINS HYDROCHLORIDE (SERTRALINE HYDROCHLORIDE) [Concomitant]
  10. FOLIC ACID [Concomitant]
  11. INSULIN [Concomitant]

REACTIONS (4)
  - ANURIA [None]
  - DIZZINESS [None]
  - FALL [None]
  - PROSTATIC DISORDER [None]
